FAERS Safety Report 6607215-2 (Version None)
Quarter: 2010Q1

REPORT INFORMATION
  Report Type: 
  Country: None (occurrence: None)
  Receive Date: 20100227
  Receipt Date: 20100223
  Transmission Date: 20100710
  Serious: Yes (Death, Hospitalization)
  Sender: FDA-Public Use
  Company Number: US-JNJFOC-20100210682

PATIENT
  Sex: Male
  Weight: 81.65 kg

DRUGS (13)
  1. DURAGESIC-100 [Suspect]
     Indication: PANCREATIC DISORDER
     Route: 062
  2. HYDROCODONE [Concomitant]
     Indication: ABDOMINAL PAIN UPPER
     Route: 048
  3. FUROSEMIDE [Concomitant]
     Indication: ABDOMINAL PAIN UPPER
     Route: 048
  4. ABILIFY [Concomitant]
     Indication: ABDOMINAL PAIN UPPER
     Route: 048
  5. BUPROPION HCL [Concomitant]
     Indication: ABDOMINAL PAIN UPPER
     Route: 048
  6. ZICAM [Concomitant]
     Indication: ABDOMINAL PAIN UPPER
     Route: 048
  7. ZOLPIDEM TARTRATE [Concomitant]
     Indication: ABDOMINAL PAIN UPPER
     Route: 048
  8. NEURONTIN [Concomitant]
     Indication: ABDOMINAL PAIN UPPER
     Route: 048
  9. POTASSIUM CHLORIDE [Concomitant]
     Indication: ABDOMINAL PAIN UPPER
     Route: 048
  10. TEMAZEPAM [Concomitant]
     Indication: ABDOMINAL PAIN UPPER
     Route: 048
  11. CAMPRAL [Concomitant]
     Indication: ABDOMINAL PAIN UPPER
     Route: 048
  12. ALBUTEROL [Concomitant]
     Indication: ABDOMINAL PAIN UPPER
     Route: 055
  13. TRIAZOLAM [Concomitant]
     Indication: ABDOMINAL PAIN UPPER
     Route: 048

REACTIONS (2)
  - DEATH [None]
  - HOSPITALISATION [None]
